FAERS Safety Report 18755416 (Version 1)
Quarter: 2021Q1

REPORT INFORMATION
  Report Type: Spontaneous
  Country: US (occurrence: US)
  Receive Date: 20210115
  Receipt Date: 20210115
  Transmission Date: 20210419
  Serious: No
  Sender: FDA-Public Use
  Company Number: None

PATIENT
  Sex: Female

DRUGS (3)
  1. LOSARTAN POTASSIUM. [Concomitant]
     Active Substance: LOSARTAN POTASSIUM
  2. ZYRTEC [Suspect]
     Active Substance: CETIRIZINE HYDROCHLORIDE
  3. NUCALA [Concomitant]
     Active Substance: MEPOLIZUMAB

REACTIONS (4)
  - Urticaria [None]
  - Headache [None]
  - Fatigue [None]
  - Pruritus [None]

NARRATIVE: CASE EVENT DATE: 20210102
